FAERS Safety Report 8366985-6 (Version None)
Quarter: 2012Q2

REPORT INFORMATION
  Report Type: 
  Country: None (occurrence: None)
  Receive Date: 20120517
  Receipt Date: 20120509
  Transmission Date: 20120825
  Serious: Yes (Hospitalization)
  Sender: FDA-Public Use
  Company Number: JP-AMGEN-JPNCT2012022050

PATIENT
  Age: 71 Year
  Sex: Female
  Weight: 37 kg

DRUGS (4)
  1. FLUOROURACIL [Concomitant]
     Indication: COLORECTAL CANCER
     Dosage: 3700 MG, Q2WK
     Route: 041
     Dates: start: 20110829
  2. ISOVORIN [Concomitant]
     Indication: COLORECTAL CANCER
     Dosage: 260 MG, Q2WK
     Route: 041
     Dates: start: 20110829
  3. IRINOTECAN HCL [Suspect]
     Indication: COLORECTAL CANCER
     Dosage: 200 MG, Q2WK
     Route: 041
     Dates: start: 20110829, end: 20111214
  4. VECTIBIX [Suspect]
     Indication: COLORECTAL CANCER
     Dosage: 240 MG, Q2WK
     Dates: start: 20111130, end: 20111214

REACTIONS (2)
  - STOMATITIS [None]
  - LIVER FUNCTION TEST ABNORMAL [None]
